FAERS Safety Report 17195641 (Version 1)
Quarter: 2020Q1

REPORT INFORMATION
  Report Type: Spontaneous
  Country: US (occurrence: US)
  Receive Date: 20191223
  Receipt Date: 20191223
  Transmission Date: 20200409
  Serious: Yes (Hospitalization)
  Sender: FDA-Public Use
  Company Number: None

PATIENT
  Age: 47 Year
  Sex: Male

DRUGS (13)
  1. ALBUTEROL NEB [Concomitant]
     Active Substance: ALBUTEROL
  2. OMEPRAZOLE TAB [Concomitant]
  3. PREDNISONE TAB [Concomitant]
     Active Substance: PREDNISONE
  4. DULOXETINE CAPSULES [Concomitant]
  5. PROCARDIA XL TAB [Concomitant]
  6. VITAMIN D CAPSULES [Concomitant]
  7. OXTELLAR XR TAB [Concomitant]
  8. AMANTADINE TAB [Concomitant]
  9. B12 TAB [Concomitant]
  10. BACLOFEN TAB [Concomitant]
  11. ZYRTEC [Concomitant]
     Active Substance: CETIRIZINE HYDROCHLORIDE
  12. GLATIRAMER [Suspect]
     Active Substance: GLATIRAMER
     Indication: MULTIPLE SCLEROSIS
     Dosage: ?          OTHER FREQUENCY:3 TIMES A WEEK;?
     Route: 058
     Dates: start: 20190221
  13. CILOSTAZOL. [Concomitant]
     Active Substance: CILOSTAZOL

REACTIONS (2)
  - Surgery [None]
  - Therapy cessation [None]
